FAERS Safety Report 8853281 (Version 2)
Quarter: 2012Q4

REPORT INFORMATION
  Report Type: 
  Country: DE (occurrence: DE)
  Receive Date: 20121022
  Receipt Date: 20121227
  Transmission Date: 20130627
  Serious: Yes (Hospitalization)
  Sender: FDA-Public Use
  Company Number: DE-ROCHE-1072345

PATIENT
  Age: 58 Year
  Sex: Female

DRUGS (4)
  1. ROACTEMRA [Suspect]
     Indication: RHEUMATOID ARTHRITIS
     Route: 042
     Dates: start: 20110811
  2. PANTOPRAZOL [Concomitant]
     Route: 065
  3. PREDNISOLONE [Concomitant]
     Dosage: 30mg/20mg/10mg/1/5mg
     Route: 065
  4. CALCIUM/VITAMIN D [Concomitant]
     Dosage: 400 IE/600 mg
     Route: 065

REACTIONS (1)
  - Psoriasis [Recovered/Resolved]
